FAERS Safety Report 7450684-9 (Version None)
Quarter: 2011Q2

REPORT INFORMATION
  Report Type: 
  Country: None (occurrence: None)
  Receive Date: 20110429
  Receipt Date: 20110429
  Transmission Date: 20111010
  Serious: Yes (Other)
  Sender: FDA-Public Use
  Company Number: None

PATIENT
  Age: 72 Year
  Sex: Female

DRUGS (1)
  1. LEVAQUIN [Suspect]
     Indication: BRONCHITIS
     Dosage: 500MG ONE DAILY ORAL
     Route: 048
     Dates: start: 20110329, end: 20110405

REACTIONS (5)
  - ARTHRALGIA [None]
  - OSTEOARTHRITIS [None]
  - FIBROMYALGIA [None]
  - LIGAMENT RUPTURE [None]
  - JOINT RANGE OF MOTION DECREASED [None]
